FAERS Safety Report 5776629-5 (Version None)
Quarter: 2008Q2

REPORT INFORMATION
  Report Type: 
  Country: None (occurrence: None)
  Receive Date: 20080618
  Receipt Date: 20080219
  Transmission Date: 20081010
  Serious: No
  Sender: FDA-Public Use
  Company Number: US-ASTRAZENECA-2008UW03358

PATIENT
  Age: 59 Year
  Sex: Female
  Weight: 81.7 kg

DRUGS (7)
  1. SYMBICORT [Suspect]
     Indication: ASTHMA
     Route: 055
     Dates: start: 20080213
  2. FLONASE [Concomitant]
  3. CORDRAN TAPE [Concomitant]
  4. METOPROLOL [Concomitant]
  5. CALCIUM [Concomitant]
  6. VITAMIN D [Concomitant]
  7. OMEGA 3 [Concomitant]

REACTIONS (4)
  - COUGH [None]
  - INFLUENZA LIKE ILLNESS [None]
  - PYREXIA [None]
  - WHEEZING [None]
